FAERS Safety Report 19423140 (Version 1)
Quarter: 2021Q2

REPORT INFORMATION
  Report Type: Spontaneous
  Country: US (occurrence: US)
  Receive Date: 20210616
  Receipt Date: 20210616
  Transmission Date: 20210717
  Serious: Yes (Other)
  Sender: FDA-Public Use
  Company Number: None

PATIENT
  Age: 74 Year
  Sex: Female
  Weight: 83.5 kg

DRUGS (7)
  1. 0.9% SODIUM CHLORIDE [Concomitant]
     Active Substance: SODIUM CHLORIDE
     Dates: start: 20210610, end: 20210610
  2. LIDOCAINE/PRILOCAINE TOPICAL CREAM [Concomitant]
     Dates: start: 20210610, end: 20210610
  3. FENTANYL INJ [Concomitant]
     Dates: start: 20210610, end: 20210610
  4. VERAPAMIL INJ [Concomitant]
     Dates: start: 20210610, end: 20210610
  5. HEPARIN SODIUM INJECTION, USP [Suspect]
     Active Substance: HEPARIN SODIUM
     Indication: INTERMITTENT CLAUDICATION
     Dosage: ?          OTHER FREQUENCY:INTERMITTENT;?
     Route: 040
     Dates: start: 20210610, end: 20210610
  6. MIDAZOLAM INJ [Concomitant]
     Active Substance: MIDAZOLAM HYDROCHLORIDE
     Dates: start: 20210610, end: 20210610
  7. NITROGLYCERINE INJ [Concomitant]
     Dates: start: 20210610, end: 20210610

REACTIONS (1)
  - Therapeutic product effect decreased [None]

NARRATIVE: CASE EVENT DATE: 20210610
